FAERS Safety Report 19967592 (Version 1)
Quarter: 2021Q4

REPORT INFORMATION
  Report Type: Spontaneous
  Country: US (occurrence: US)
  Receive Date: 20211018
  Receipt Date: 20211018
  Transmission Date: 20220303
  Serious: No
  Sender: FDA-Public Use
  Company Number: None

PATIENT
  Age: 69 Year
  Sex: Male
  Weight: 81.9 kg

DRUGS (1)
  1. STIVARGA [Suspect]
     Active Substance: REGORAFENIB
     Indication: Rectal cancer metastatic
     Dosage: ?          OTHER FREQUENCY:21 OUT OF 28 DAYS;
     Route: 048

REACTIONS (4)
  - Abdominal pain [None]
  - Chromaturia [None]
  - Urethral discharge [None]
  - Glossodynia [None]

NARRATIVE: CASE EVENT DATE: 20211018
